FAERS Safety Report 14974019 (Version 2)
Quarter: 2018Q2

REPORT INFORMATION
  Report Type: Spontaneous
  Country: FR (occurrence: FR)
  Receive Date: 20180605
  Receipt Date: 20180608
  Transmission Date: 20180711
  Serious: Yes (Death, Other)
  Sender: FDA-Public Use
  Company Number: FR-009507513-1806FRA000349

PATIENT
  Sex: Male

DRUGS (3)
  1. AMIKLIN [Concomitant]
     Active Substance: AMIKACIN SULFATE
     Indication: LUNG DISORDER
  2. IMIPENEM AND CILASTATIN [Suspect]
     Active Substance: CILASTATIN SODIUM\IMIPENEM
     Indication: LUNG DISORDER
  3. RIFADIN [Concomitant]
     Active Substance: RIFAMPIN
     Indication: LUNG DISORDER

REACTIONS (2)
  - Death [Fatal]
  - Multiple-drug resistance [Unknown]
